FAERS Safety Report 9724992 (Version 1)
Quarter: 2013Q4

REPORT INFORMATION
  Report Type: Spontaneous
  Country: US (occurrence: US)
  Receive Date: 20131202
  Receipt Date: 20131202
  Transmission Date: 20140711
  Serious: No
  Sender: FDA-Public Use
  Company Number: US-009507513-1311USA011597

PATIENT
  Age: 17 Year
  Sex: Female
  Weight: 96.15 kg

DRUGS (1)
  1. IMPLANON [Suspect]
     Indication: CONTRACEPTION
     Dosage: 1 ROD UP TO THREE YEARS, UNDER THE SKIN OF THE LEFT ARM
     Route: 059
     Dates: start: 20121209

REACTIONS (2)
  - Dysmenorrhoea [Unknown]
  - Amenorrhoea [Recovered/Resolved]
